FAERS Safety Report 12854376 (Version 1)
Quarter: 2016Q4

REPORT INFORMATION
  Report Type: Spontaneous
  Country: US (occurrence: US)
  Receive Date: 20161017
  Receipt Date: 20161017
  Transmission Date: 20170207
  Serious: No
  Sender: FDA-Public Use
  Company Number: US-GALDERMA-US16005428

PATIENT
  Age: 38 Year
  Sex: Female

DRUGS (2)
  1. SOOLANTRA [Suspect]
     Active Substance: IVERMECTIN
     Indication: DEMODICIDOSIS
     Dosage: 1%
     Route: 061
     Dates: start: 201604, end: 20160802
  2. UNSPECIFIED PRENATAL VITAMINS [Concomitant]
     Route: 048

REACTIONS (1)
  - Pregnancy [Unknown]

NARRATIVE: CASE EVENT DATE: 201604
